FAERS Safety Report 18776422 (Version 2)
Quarter: 2021Q1

REPORT INFORMATION
  Report Type: Spontaneous
  Country: DE (occurrence: DE)
  Receive Date: 20210122
  Receipt Date: 20210126
  Transmission Date: 20210419
  Serious: Yes (Hospitalization, Other)
  Sender: FDA-Public Use
  Company Number: DE-PFIZER INC-2021030377

PATIENT
  Age: 46 Year
  Sex: Male

DRUGS (2)
  1. ZITHROMAX [Suspect]
     Active Substance: AZITHROMYCIN DIHYDRATE
     Indication: RESPIRATORY TRACT INFECTION
     Dosage: UNK
  2. RULID [Suspect]
     Active Substance: ROXITHROMYCIN
     Indication: RHINITIS
     Dosage: 300 MG, 1X/DAY (1X 300 MG/DAY FOR 5 DAYS)

REACTIONS (2)
  - Organ failure [Recovering/Resolving]
  - Eosinophilic granulomatosis with polyangiitis [Recovering/Resolving]

NARRATIVE: CASE EVENT DATE: 199504
